FAERS Safety Report 17432853 (Version 2)
Quarter: 2020Q2

REPORT INFORMATION
  Report Type: Spontaneous
  Country: US (occurrence: US)
  Receive Date: 20200219
  Receipt Date: 20200630
  Transmission Date: 20200713
  Serious: Yes (Other)
  Sender: FDA-Public Use
  Company Number: US-ABBVIE-20K-163-3273455-00

PATIENT
  Sex: Female

DRUGS (2)
  1. SYNTHROID [Suspect]
     Active Substance: LEVOTHYROXINE SODIUM
     Indication: PRODUCT USED FOR UNKNOWN INDICATION
     Route: 048
  2. ARMOUR THYROID [Concomitant]
     Active Substance: THYROID, PORCINE
     Indication: PRODUCT USED FOR UNKNOWN INDICATION

REACTIONS (8)
  - Hypersomnia [Unknown]
  - Alopecia [Unknown]
  - Petit mal epilepsy [Unknown]
  - Unevaluable event [Unknown]
  - Rash [Unknown]
  - Thyroidectomy [Unknown]
  - Blood cholesterol increased [Unknown]
  - Parkinson^s disease [Unknown]

NARRATIVE: CASE EVENT DATE: 2003
